FAERS Safety Report 7883363 (Version 4)
Quarter: 2014Q1

REPORT INFORMATION
  Report Type: Spontaneous
  Country: US (occurrence: US)
  Receive Date: 20110404
  Receipt Date: 20140116
  Transmission Date: 20141002
  Serious: Yes (Other)
  Sender: FDA-Public Use
  Company Number: US-BAYER-2011-028189

PATIENT
  Age: 28 Year
  Sex: Female
  Weight: 83.9 kg

DRUGS (5)
  1. YASMIN [Suspect]
     Dosage: UNK
     Dates: start: 20060101, end: 20100601
  2. YASMIN [Suspect]
     Dosage: UNK
     Dates: start: 2008
  3. YASMIN [Suspect]
     Dosage: UNK
     Dates: start: 2009
  4. OCELLA [Suspect]
     Dosage: UNK
     Dates: start: 2008, end: 2009
  5. OCELLA [Suspect]
     Dosage: UNK
     Dates: start: 2009

REACTIONS (5)
  - Cerebrovascular accident [None]
  - Pain [None]
  - Gallbladder disorder [None]
  - Emotional distress [None]
  - Anhedonia [None]
